FAERS Safety Report 11206524 (Version 1)
Quarter: 2015Q2

REPORT INFORMATION
  Report Type: Spontaneous
  Country: US (occurrence: None)
  Receive Date: 20150618
  Receipt Date: 20150618
  Transmission Date: 20150821
  Serious: Yes (Disabling)
  Sender: FDA-Public Use
  Company Number: None

PATIENT
  Age: 42 Year
  Sex: Female
  Weight: 57.61 kg

DRUGS (1)
  1. CIPROFLOXACIN 500 MG TAB WEST WARD [Suspect]
     Active Substance: CIPROFLOXACIN HYDROCHLORIDE
     Indication: BACTERIAL TEST
     Route: 048
     Dates: start: 20150608, end: 20150613

REACTIONS (4)
  - Diarrhoea [None]
  - Vomiting [None]
  - Nausea [None]
  - Dysgeusia [None]

NARRATIVE: CASE EVENT DATE: 20150614
